FAERS Safety Report 18668146 (Version 1)
Quarter: 2020Q4

REPORT INFORMATION
  Report Type: Spontaneous
  Country: US (occurrence: US)
  Receive Date: 20201224
  Receipt Date: 20201224
  Transmission Date: 20210114
  Serious: Yes (Hospitalization)
  Sender: FDA-Public Use
  Company Number: None

PATIENT
  Age: 42 Year
  Sex: Female
  Weight: 77.11 kg

DRUGS (6)
  1. OPSUMIT [Concomitant]
     Active Substance: MACITENTAN
  2. FLUROCIMIDE [Concomitant]
  3. OMEPRAZOLE. [Concomitant]
     Active Substance: OMEPRAZOLE
  4. ADEMPAS [Concomitant]
     Active Substance: RIOCIGUAT
  5. LISINOPRIL. [Concomitant]
     Active Substance: LISINOPRIL
  6. REMODULIN [Suspect]
     Active Substance: TREPROSTINIL
     Indication: PULMONARY ARTERIAL HYPERTENSION
     Dosage: GIVEN INTO/UNDER THE SKIN
     Dates: start: 20201008

REACTIONS (4)
  - Peripheral swelling [None]
  - Cellulitis [None]
  - Infusion site pain [None]
  - Erythema [None]

NARRATIVE: CASE EVENT DATE: 20201224
